FAERS Safety Report 5797827-0 (Version None)
Quarter: 2008Q3

REPORT INFORMATION
  Report Type: 
  Country: None (occurrence: None)
  Receive Date: 20080702
  Receipt Date: 20080625
  Transmission Date: 20090109
  Serious: Yes (Death, Hospitalization)
  Sender: FDA-Public Use
  Company Number: BR-WYE-H04737508

PATIENT
  Age: 58 Year
  Sex: Female
  Weight: 130 kg

DRUGS (2)
  1. TYGACIL [Suspect]
     Indication: PERITONITIS
     Dosage: UNKNOWN
     Route: 042
  2. TYGACIL [Suspect]
     Indication: FISTULA

REACTIONS (2)
  - DEATH [None]
  - THROMBOCYTOPENIA [None]
